FAERS Safety Report 21637618 (Version 3)
Quarter: 2023Q1

REPORT INFORMATION
  Report Type: Spontaneous
  Country: DE (occurrence: None)
  Receive Date: 20221124
  Receipt Date: 20230209
  Transmission Date: 20230417
  Serious: Yes (Other)
  Sender: FDA-Public Use
  Company Number: DE-ROCHE-3222765

PATIENT
  Age: 69 Year
  Sex: Female
  Weight: 68 kg

DRUGS (6)
  1. HERCEPTIN [Suspect]
     Active Substance: TRASTUZUMAB
     Indication: Breast cancer metastatic
     Dosage: FOR ONE YEAR AS ADJUVANT THERAPY
     Route: 058
     Dates: start: 2009, end: 2010
  2. HERCEPTIN [Suspect]
     Active Substance: TRASTUZUMAB
     Dosage: AT FIRST IN COMBINATION WITH PERJETA
     Route: 058
     Dates: start: 2013
  3. HERCEPTIN [Suspect]
     Active Substance: TRASTUZUMAB
     Dosage: IN THE FURTHER COURSE WITHOUT PERJETA
     Route: 058
  4. HERCEPTIN [Suspect]
     Active Substance: TRASTUZUMAB
     Route: 058
     Dates: start: 2020
  5. HERCEPTIN [Suspect]
     Active Substance: TRASTUZUMAB
     Route: 058
     Dates: start: 20221103
  6. PERJETA [Suspect]
     Active Substance: PERTUZUMAB
     Indication: Breast cancer
     Dosage: IN COMBINATION WITH HERCEPTIN
     Route: 065
     Dates: start: 2013

REACTIONS (9)
  - Breast cancer metastatic [Unknown]
  - Muscle spasms [Unknown]
  - Lacrimation increased [Recovering/Resolving]
  - Nasal mucosal disorder [Recovering/Resolving]
  - Conjunctivitis [Recovering/Resolving]
  - Incorrect drug administration rate [Unknown]
  - Muscle spasms [Not Recovered/Not Resolved]
  - Rhinorrhoea [Not Recovered/Not Resolved]
  - Visual impairment [Not Recovered/Not Resolved]

NARRATIVE: CASE EVENT DATE: 20130101
